FAERS Safety Report 21169803 (Version 1)
Quarter: 2022Q3

REPORT INFORMATION
  Report Type: Spontaneous
  Country: CN (occurrence: CN)
  Receive Date: 20220804
  Receipt Date: 20220804
  Transmission Date: 20221026
  Serious: Yes (Hospitalization, Other)
  Sender: FDA-Public Use
  Company Number: None

PATIENT
  Age: 72 Year
  Sex: Male
  Weight: 60 kg

DRUGS (7)
  1. CYCLOPHOSPHAMIDE [Suspect]
     Active Substance: CYCLOPHOSPHAMIDE
     Indication: Lymphoma
     Dosage: 1000 MG QD, DILUTED WITH 0.9% SODIUM CHLORIDE INJECTION 100ML)
     Route: 041
     Dates: start: 20220702, end: 20220702
  2. DEXTROSE MONOHYDRATE [Suspect]
     Active Substance: DEXTROSE MONOHYDRATE
     Indication: Medication dilution
     Dosage: 100 ML QD,D1, (DILUTED WITH PIRARUBICIN HYDROCHLORIDE FOR INJECTION 70 MG D1)
     Route: 041
     Dates: start: 20220702, end: 20220702
  3. SODIUM CHLORIDE [Suspect]
     Active Substance: SODIUM CHLORIDE
     Indication: Medication dilution
     Dosage: 100 ML QD, (DILUTED WITH CYCLOPHOSPHAMIDE FOR INJECTION 1G )
     Route: 041
     Dates: start: 20220702, end: 20220702
  4. SODIUM CHLORIDE [Suspect]
     Active Substance: SODIUM CHLORIDE
     Dosage: 20 ML, QD (DILUTED WITH VINCRISTINE SULFATE 2 MG)
     Route: 041
     Dates: start: 20220702, end: 20220702
  5. PIRARUBICIN HYDROCHLORIDE [Suspect]
     Active Substance: PIRARUBICIN HYDROCHLORIDE
     Indication: Lymphoma
     Dosage: 70 MG QD D1, (DILUTED WITH 5% GLUCOSE INJECTION 100ML)
     Route: 041
     Dates: start: 20220702, end: 20220702
  6. VINCRISTINE SULFATE [Suspect]
     Active Substance: VINCRISTINE SULFATE
     Indication: Lymphoma
     Dosage: 2 MG QD (DILUTED WITH 0.9% SODIUM CHLORIDE INJECTION 20ML)
     Route: 041
     Dates: start: 20220702, end: 20220702
  7. Sheng xue bao [Concomitant]
     Indication: Prophylaxis
     Dosage: 15 ML TID MIXTURE
     Route: 048
     Dates: start: 202207

REACTIONS (2)
  - Neutrophil count decreased [Recovered/Resolved]
  - Granulocytopenia [Recovered/Resolved]

NARRATIVE: CASE EVENT DATE: 20220701
